FAERS Safety Report 6456300-7 (Version None)
Quarter: 2009Q4

REPORT INFORMATION
  Report Type: 
  Country: None (occurrence: None)
  Receive Date: 20091125
  Receipt Date: 20091116
  Transmission Date: 20100525
  Serious: Yes (Other)
  Sender: FDA-Public Use
  Company Number: PT-ROCHE-669018

PATIENT
  Age: 60 Year
  Sex: Female

DRUGS (1)
  1. BONIVA [Suspect]
     Indication: OSTEOPOROSIS PROPHYLAXIS
     Dosage: DOSE: 1 TABLET.
     Route: 048
     Dates: start: 20091113

REACTIONS (3)
  - ARTHRALGIA [None]
  - DYSPNOEA [None]
  - MYALGIA [None]
